FAERS Safety Report 9239684 (Version 2)
Quarter: 2013Q2

REPORT INFORMATION
  Report Type: Spontaneous
  Country: CN (occurrence: CN)
  Receive Date: 20130418
  Receipt Date: 20130514
  Transmission Date: 20140414
  Serious: Yes (Hospitalization)
  Sender: FDA-Public Use
  Company Number: CN-BAYER-2013-045897

PATIENT
  Age: 44 Year
  Sex: Female

DRUGS (1)
  1. YASMIN [Suspect]
     Indication: DYSFUNCTIONAL UTERINE BLEEDING
     Dosage: 2 DF, BID
     Route: 048
     Dates: start: 20130222, end: 20130225

REACTIONS (5)
  - Deep vein thrombosis [Recovering/Resolving]
  - Dizziness [Recovering/Resolving]
  - Coma [Recovering/Resolving]
  - Off label use [None]
  - Incorrect dose administered [None]
